FAERS Safety Report 5066881-6 (Version None)
Quarter: 2006Q3

REPORT INFORMATION
  Report Type: 
  Country: None (occurrence: None)
  Receive Date: 20060726
  Receipt Date: 20060713
  Transmission Date: 20061208
  Serious: Yes (Death, Life-Threatening)
  Sender: FDA-Public Use
  Company Number: 2006085627

PATIENT
  Age: 53 Year
  Sex: Male
  Weight: 55 kg

DRUGS (23)
  1. VFEND [Suspect]
     Indication: DRUG USE FOR UNKNOWN INDICATION
     Dosage: 400 MG (200 MG, 2 IN 1 D), ORAL
     Route: 048
     Dates: start: 20060414, end: 20060524
  2. FLUCONAZOLE [Concomitant]
  3. KALETRA [Concomitant]
  4. OMEPRAZOLE [Concomitant]
  5. XANAX [Concomitant]
  6. TRAMADOL HCL [Concomitant]
  7. TRAMADOL HCL [Concomitant]
  8. MORPHINE SULFATE [Concomitant]
  9. MORPHINE SULFATE [Concomitant]
  10. MORPHINE [Concomitant]
  11. DURAGESIC-100 [Concomitant]
  12. ZERIT [Concomitant]
  13. EPIVIR [Concomitant]
  14. BACTRIM DS [Concomitant]
  15. CANCIDAS [Concomitant]
  16. WELLVONE (ATOVAQUONE) [Concomitant]
  17. FUNGIZONE [Concomitant]
  18. TRANXENE [Concomitant]
  19. THERALENE (ALIMEMAZINE TARTRATE) [Concomitant]
  20. LOVENOX [Concomitant]
  21. SPECIAFOLDINE (FOLIC ACID) [Concomitant]
  22. MYOLASTAN (TETRAZEPAM) [Concomitant]
  23. COMBIVIR [Concomitant]

REACTIONS (4)
  - ANAEMIA [None]
  - BLOOD ALBUMIN DECREASED [None]
  - DRUG LEVEL ABOVE THERAPEUTIC [None]
  - HEPATITIS CHOLESTATIC [None]
